FAERS Safety Report 11358788 (Version 1)
Quarter: 2015Q3

REPORT INFORMATION
  Report Type: Report from Study
  Country: US (occurrence: None)
  Receive Date: 20150716
  Receipt Date: 20150716
  Transmission Date: 20151125
  Serious: Yes (Hospitalization)
  Sender: FDA-Public Use
  Company Number: 2015SIPUSA00695

PATIENT
  Age: 86 Year
  Sex: Male

DRUGS (7)
  1. SIPULEUCEL-T (SIPULEUCEL-T) SUSPENSION [Suspect]
     Active Substance: SIPULEUCEL-T
     Indication: PROSTATE CANCER METASTATIC
     Dosage: 250 ML, SINGLE INTRAVENOUS
     Route: 042
     Dates: start: 20140113, end: 20140113
  2. DIOVAN [Concomitant]
     Active Substance: VALSARTAN
  3. CALCIUM +D (CALCIUM CARBONATE, COLECALCIFEROL) [Concomitant]
  4. ENZALUTAMIDE (ENZALUTAMIDE) CAPSULE [Suspect]
     Active Substance: ENZALUTAMIDE
     Indication: PROSTATE CANCER METASTATIC
     Dates: start: 20140326, end: 20150104
  5. COLACE [Concomitant]
     Active Substance: DOCUSATE SODIUM
  6. ATORVASTATIN [Concomitant]
     Active Substance: ATORVASTATIN
  7. FLOMAX [Concomitant]
     Active Substance: TAMSULOSIN HYDROCHLORIDE

REACTIONS (1)
  - Urinary tract infection enterococcal [None]

NARRATIVE: CASE EVENT DATE: 20150203
